FAERS Safety Report 13664549 (Version 4)
Quarter: 2017Q3

REPORT INFORMATION
  Report Type: Spontaneous
  Country: US (occurrence: US)
  Receive Date: 20170619
  Receipt Date: 20170811
  Transmission Date: 20171127
  Serious: Yes (Other)
  Sender: FDA-Public Use
  Company Number: US-GLAXOSMITHKLINE-US2017089212

PATIENT
  Sex: Female
  Weight: 94 kg

DRUGS (4)
  1. DICLOFENAC SODIUM. [Suspect]
     Active Substance: DICLOFENAC SODIUM
     Indication: ILIOTIBIAL BAND SYNDROME
     Dosage: UNK, WAS ONLY USING IT ONCE OR TWICE A DAY THE 4 GRAMS
     Dates: start: 201704, end: 201706
  2. NEOSPORIN [Suspect]
     Active Substance: BACITRACIN ZINC\NEOMYCIN SULFATE\POLYMYXIN B SULFATE
     Indication: APPLICATION SITE VESICLES
     Dosage: UNK
     Dates: start: 201706, end: 201706
  3. NEOSPORIN [Suspect]
     Active Substance: BACITRACIN ZINC\NEOMYCIN SULFATE\POLYMYXIN B SULFATE
     Indication: RASH
  4. DICLOFENAC SODIUM. [Suspect]
     Active Substance: DICLOFENAC SODIUM
     Indication: SPINAL OSTEOARTHRITIS

REACTIONS (16)
  - Application site vesicles [Not Recovered/Not Resolved]
  - Application site dryness [Not Recovered/Not Resolved]
  - Application site erythema [Not Recovered/Not Resolved]
  - Application site reaction [Not Recovered/Not Resolved]
  - Inappropriate schedule of drug administration [Unknown]
  - Product use in unapproved indication [Unknown]
  - Application site hyperaesthesia [Not Recovered/Not Resolved]
  - Contraindicated drug prescribed [Unknown]
  - Drug administered at inappropriate site [Unknown]
  - Discomfort [Unknown]
  - Drug ineffective for unapproved indication [Unknown]
  - Application site pain [Not Recovered/Not Resolved]
  - Rash [Unknown]
  - Stevens-Johnson syndrome [Unknown]
  - Application site erosion [Not Recovered/Not Resolved]
  - Off label use [Unknown]
